FAERS Safety Report 18982216 (Version 1)
Quarter: 2021Q1

REPORT INFORMATION
  Report Type: Spontaneous
  Country: GB (occurrence: GB)
  Receive Date: 20210308
  Receipt Date: 20210308
  Transmission Date: 20210420
  Serious: Yes (Death, Other)
  Sender: FDA-Public Use
  Company Number: GB-TEVA-2021-GB-1884961

PATIENT
  Sex: Female

DRUGS (2)
  1. ABACAVIR W/LAMIVUDINE [Suspect]
     Active Substance: ABACAVIR\LAMIVUDINE
     Dosage: 600/300MG
  2. ISENTRESS [Suspect]
     Active Substance: RALTEGRAVIR POTASSIUM
     Route: 048

REACTIONS (1)
  - Death [Fatal]
